FAERS Safety Report 25638220 (Version 1)
Quarter: 2025Q3

REPORT INFORMATION
  Report Type: Spontaneous
  Country: US (occurrence: US)
  Receive Date: 20250804
  Receipt Date: 20250804
  Transmission Date: 20251021
  Serious: Yes (Hospitalization, Other)
  Sender: GLENMARK
  Company Number: US-MLMSERVICE-20250717-PI579645-00232-1

PATIENT
  Age: 69 Year
  Sex: Male

DRUGS (7)
  1. TACROLIMUS [Suspect]
     Active Substance: TACROLIMUS
     Indication: Immunosuppressant drug therapy
     Dosage: 4.5 MILLIGRAM, QD (2.5 MG IN THE MORNING AND 2 MG IN THE EVENING. GOAL: 10-15 NG/ML)
     Route: 065
  2. TACROLIMUS [Suspect]
     Active Substance: TACROLIMUS
     Dosage: 3 MILLIGRAM, QD (07 MONTHS- 2 MG IN THE MORNING AND 1 MG IN THE EVENING (COMBINED GOAL: 8-10 NG/ML))
     Route: 065
  3. TACROLIMUS [Suspect]
     Active Substance: TACROLIMUS
     Dosage: 1 MILLIGRAM, BID (14 MONTHS 1 MG TWICE A DAY (COMBINED GOAL: 8-10 NG/ML))
     Route: 065
  4. MYCOPHENOLATE MOFETIL [Suspect]
     Active Substance: MYCOPHENOLATE MOFETIL
     Indication: Immunosuppressant drug therapy
     Dosage: 540 MILLIGRAM, BID (EVERY 12 HOURS) (TWICE A DAY)
     Route: 065
  5. PREDNISONE [Suspect]
     Active Substance: PREDNISONE
     Indication: Immunosuppressant drug therapy
     Dosage: 5 MILLIGRAM, QD
     Route: 065
  6. ISAVUCONAZONIUM SULFATE [Concomitant]
     Active Substance: ISAVUCONAZONIUM SULFATE
     Indication: Infection prophylaxis
     Route: 065
  7. ATOVAQUONE [Concomitant]
     Active Substance: ATOVAQUONE
     Indication: Infection prophylaxis
     Route: 065

REACTIONS (1)
  - Kaposi^s sarcoma [Recovering/Resolving]
